FAERS Safety Report 10012712 (Version 1)
Quarter: 2014Q1

REPORT INFORMATION
  Report Type: Spontaneous
  Country: US (occurrence: US)
  Receive Date: 20140314
  Receipt Date: 20140314
  Transmission Date: 20141002
  Serious: Yes (Hospitalization)
  Sender: FDA-Public Use
  Company Number: US-DAIICHI SANKYO EUROPE GMBH-DSU-2014-100298

PATIENT
  Sex: 0

DRUGS (2)
  1. TRIBENZOR [Suspect]
     Dosage: UNK
     Route: 048
  2. PENICILLIN /00000901/ [Suspect]
     Indication: PRODUCT USED FOR UNKNOWN INDICATION
     Dosage: UNK
     Route: 048

REACTIONS (4)
  - Palpitations [Unknown]
  - Blood pressure increased [Unknown]
  - Adverse event [Unknown]
  - Drug interaction [Unknown]
